FAERS Safety Report 9630752 (Version 2)
Quarter: 2014Q1

REPORT INFORMATION
  Report Type: Spontaneous
  Country: GB (occurrence: None)
  Receive Date: 20131011
  Receipt Date: 20140124
  Transmission Date: 20141002
  Serious: Yes (Other)
  Sender: FDA-Public Use
  Company Number: AUR-APL-2013-08320

PATIENT
  Age: 78 Year
  Sex: Male

DRUGS (4)
  1. TERBINAFINE [Suspect]
     Indication: TINEA INFECTION
     Dosage: 250 MG (250 MG, 1 IN 1 D), ORAL
     Route: 048
     Dates: start: 20130808, end: 20130828
  2. BALNEUM (PARAFFIN, LIQUID) [Concomitant]
  3. EUMOVATE (CLOBETASONE BUTYRATE) [Concomitant]
  4. PREDNISOLONE (PREDNISOLONE) [Concomitant]

REACTIONS (5)
  - Stevens-Johnson syndrome [None]
  - Glossodynia [None]
  - Eczema [None]
  - Stress [None]
  - Insomnia [None]
